FAERS Safety Report 5899877-2 (Version None)
Quarter: 2008Q3

REPORT INFORMATION
  Report Type: 
  Country: None (occurrence: None)
  Receive Date: 20080926
  Receipt Date: 20080916
  Transmission Date: 20090109
  Serious: Yes (Hospitalization, Other)
  Sender: FDA-Public Use
  Company Number: US-BAYER-US-2006-001356

PATIENT
  Age: 11 Year
  Sex: Male

DRUGS (18)
  1. CAMPATH [Suspect]
     Indication: RENAL TRANSPLANT
     Dosage: UNIT DOSE: 0.3 MG/KG
     Route: 042
     Dates: start: 20060117, end: 20060117
  2. PROGRAF [Concomitant]
     Dates: start: 20060119
  3. SOLU-MEDROL [Concomitant]
     Indication: PROPHYLAXIS
     Route: 042
     Dates: start: 20060101
  4. ACETAMINOPHEN [Concomitant]
     Indication: PROPHYLAXIS
     Dates: start: 20060101
  5. BENADRYL [Concomitant]
     Indication: PROPHYLAXIS
     Dates: start: 20060101
  6. PREDNISONE [Concomitant]
     Dates: start: 20060117, end: 20060120
  7. NYSTATIN [Concomitant]
     Dates: start: 20060118
  8. ZANTAC [Concomitant]
     Dates: start: 20060118, end: 20060131
  9. BACTRIM [Concomitant]
     Dates: start: 20060118
  10. GANCICLOVIR [Concomitant]
     Dates: start: 20060117, end: 20060202
  11. CEFAZOLIN [Concomitant]
     Dates: start: 20060118, end: 20060120
  12. MAGNESIUM SULFATE [Concomitant]
     Dates: start: 20060118, end: 20060119
  13. LASIX [Concomitant]
     Dates: start: 20060119, end: 20060119
  14. HYDRALAZINE HCL [Concomitant]
     Dates: start: 20060119, end: 20060119
  15. CO-TRIMOXAZOLE [Concomitant]
  16. FERROUS SULFATE TAB [Concomitant]
  17. OXYBUTYIN CHLORIDE [Concomitant]
  18. SIROLIMUS [Concomitant]

REACTIONS (4)
  - GRAND MAL CONVULSION [None]
  - HYPERTENSION [None]
  - HYPONATRAEMIA [None]
  - PYELONEPHRITIS [None]
